FAERS Safety Report 8032292-4 (Version None)
Quarter: 2012Q1

REPORT INFORMATION
  Report Type: 
  Country: None (occurrence: None)
  Receive Date: 20120110
  Receipt Date: 20111228
  Transmission Date: 20120608
  Serious: Yes (Other)
  Sender: FDA-Public Use
  Company Number: GB-BRISTOL-MYERS SQUIBB COMPANY-16328965

PATIENT
  Age: 58 Year
  Sex: Female

DRUGS (1)
  1. ABILIFY [Suspect]
     Indication: SCHIZOPHRENIA
     Dosage: INITIALLY GIVEN 10MG,THEN DOSE INCREASED TO 10 MG 2 TIMES

REACTIONS (2)
  - TREATMENT NONCOMPLIANCE [None]
  - SCHIZOPHRENIA [None]
